FAERS Safety Report 4826132-1 (Version None)
Quarter: 2005Q4

REPORT INFORMATION
  Report Type: 
  Country: None (occurrence: None)
  Receive Date: 20051109
  Receipt Date: 20051031
  Transmission Date: 20060501
  Serious: Yes (Death, Hospitalization)
  Sender: FDA-Public Use
  Company Number: FABR-11254

PATIENT
  Age: 54 Year
  Sex: Male
  Weight: 68.0396 kg

DRUGS (10)
  1. FABRAZYME [Suspect]
     Indication: FABRY'S DISEASE
     Dosage: 70 MG Q2WKS IV
     Route: 042
     Dates: start: 20040206, end: 20050926
  2. BUSPIRONE HCL [Concomitant]
  3. PHOSLO [Concomitant]
  4. ALLEGRA [Concomitant]
  5. LORAZEPAM [Concomitant]
  6. VITAMIN B COMPLEX CAP [Concomitant]
  7. ASCORBIC ACID [Concomitant]
  8. COUMADIN [Concomitant]
  9. ACIPHEX [Concomitant]
  10. NEPHROVITE [Concomitant]

REACTIONS (7)
  - BRADYCARDIA [None]
  - BRAIN STEM INFARCTION [None]
  - CARDIAC ARREST [None]
  - DIARRHOEA [None]
  - HYPOXIA [None]
  - LUNG INFECTION [None]
  - SEPSIS [None]
